FAERS Safety Report 10169087 (Version 1)
Quarter: 2014Q2

REPORT INFORMATION
  Report Type: Spontaneous
  Country: US (occurrence: None)
  Receive Date: 20140512
  Receipt Date: 20140512
  Transmission Date: 20141212
  Serious: Yes (Hospitalization)
  Sender: FDA-Public Use
  Company Number: None

PATIENT
  Age: 66 Year
  Sex: Male
  Weight: 104.7 kg

DRUGS (1)
  1. CISPLATIN [Suspect]
     Dosage: DOSING WAS ON DAY 1 AND DAY 22 BUT DAY 22 WAS DELAYED ONE WEEK DUE TO LOW COUNTS

REACTIONS (1)
  - Febrile neutropenia [None]
